FAERS Safety Report 8986415 (Version 2)
Quarter: 2013Q1

REPORT INFORMATION
  Report Type: Spontaneous
  Country: US (occurrence: US)
  Receive Date: 20121226
  Receipt Date: 20130319
  Transmission Date: 20140127
  Serious: Yes (Other)
  Sender: FDA-Public Use
  Company Number: PHEH2012US025137

PATIENT
  Age: 59 Year
  Sex: Male

DRUGS (11)
  1. GILENYA [Suspect]
     Dosage: UNK
     Dates: start: 20121211
  2. AVODART [Concomitant]
  3. KLONOPIN [Concomitant]
  4. ALPRAZOLAM [Concomitant]
  5. FLOMAX ^BOEHRINGER INGELHEIM^ [Concomitant]
  6. ASPIRIN [Concomitant]
  7. HYDROCHLOROTHIAZIDE [Concomitant]
  8. LISINOPRIL [Concomitant]
  9. ALBUTEROL [Concomitant]
  10. TOPROL XL [Concomitant]
  11. HYDROCODONE [Concomitant]

REACTIONS (2)
  - Nodal rhythm [Recovered/Resolved]
  - Bradycardia [Recovered/Resolved]
